FAERS Safety Report 8677356 (Version 6)
Quarter: 2014Q2

REPORT INFORMATION
  Report Type: Spontaneous
  Country: FR (occurrence: FR)
  Receive Date: 20120723
  Receipt Date: 20140626
  Transmission Date: 20141212
  Serious: Yes (Hospitalization, Other)
  Sender: FDA-Public Use
  Company Number: PHHY2012FR058553

PATIENT
  Age: 22 Year
  Sex: Male

DRUGS (11)
  1. LEPONEX [Suspect]
     Dosage: 25 MG, QD
     Dates: start: 20050512, end: 20050714
  2. RIVOTRIL [Concomitant]
     Dosage: 1 MG, BID
  3. RIVOTRIL [Concomitant]
     Dosage: 2 MG, BID
  4. TEMESTA [Concomitant]
     Dosage: 4 MG, QD
  5. RISPERDAL [Concomitant]
     Dosage: 6 MG, QD
  6. PARKINANE LP [Concomitant]
     Dosage: 2 DF, QD
  7. SULFARLEM S 25 [Concomitant]
     Dosage: 2 MG, TID
  8. FORLAX [Concomitant]
     Dosage: 1 DF, QD
  9. LOXAPAC [Concomitant]
     Dosage: 2.5 DF, QD
  10. DAFALGAN [Concomitant]
     Dosage: 2 MG, BID
  11. TIAPRIDE [Concomitant]
     Dosage: UNK UKN, 6 CP DAILY

REACTIONS (24)
  - Psychotic disorder [Unknown]
  - Head injury [Unknown]
  - Feeling abnormal [Unknown]
  - Blood pressure systolic decreased [Unknown]
  - Cardiomyopathy [Unknown]
  - Congestive cardiomyopathy [Unknown]
  - Cardiomegaly [Unknown]
  - Dyspnoea [Not Recovered/Not Resolved]
  - Dyspnoea exertional [Not Recovered/Not Resolved]
  - Chest pain [Not Recovered/Not Resolved]
  - Left ventricular dysfunction [Recovering/Resolving]
  - Ejection fraction decreased [Recovering/Resolving]
  - Palpitations [Not Recovered/Not Resolved]
  - Tachyarrhythmia [Unknown]
  - Fatigue [Not Recovered/Not Resolved]
  - Cardiac disorder [Unknown]
  - Stress [Unknown]
  - Hyperhidrosis [Unknown]
  - Nausea [Unknown]
  - Vomiting [Unknown]
  - Weight increased [Unknown]
  - Skin reaction [Unknown]
  - Confusional state [Unknown]
  - Blood pressure increased [Unknown]
